FAERS Safety Report 8841139 (Version 1)
Quarter: 2012Q4

REPORT INFORMATION
  Report Type: 
  Country: US (occurrence: US)
  Receive Date: 20121015
  Receipt Date: 20121015
  Transmission Date: 20130627
  Serious: Yes (Hospitalization)
  Sender: FDA-Public Use
  Company Number: US-VERTEX PHARMACEUTICAL INC.-2012-022653

PATIENT
  Sex: Male

DRUGS (7)
  1. VX-950 [Suspect]
     Indication: HEPATITIS C
     Dosage: UNK
     Route: 048
     Dates: start: 20120326
  2. RIBAPAK [Suspect]
     Indication: HEPATITIS C
     Dosage: 1000 mg, qd
     Dates: start: 20120326
  3. PEGINTRON                          /01543001/ [Suspect]
     Indication: HEPATITIS C
     Dosage: 150 ?g, UNK
     Route: 058
     Dates: start: 20120326
  4. NADOLOL [Concomitant]
     Dosage: 120 mg, UNK
  5. LOVAZA [Concomitant]
     Dosage: 1 g, UNK
  6. POTASSIUM [Concomitant]
     Dosage: 75 mg, UNK
  7. VITAMIN D /00107901/ [Concomitant]

REACTIONS (3)
  - Thrombosis [Unknown]
  - Urinary tract infection [Unknown]
  - Anaemia [Unknown]
